FAERS Safety Report 19096223 (Version 2)
Quarter: 2021Q2

REPORT INFORMATION
  Report Type: Spontaneous
  Country: US (occurrence: US)
  Receive Date: 20210406
  Receipt Date: 20210615
  Transmission Date: 20210717
  Serious: No
  Sender: FDA-Public Use
  Company Number: US-BIOGEN-2020BI00929890

PATIENT
  Sex: Female

DRUGS (1)
  1. TYSABRI [Suspect]
     Active Substance: NATALIZUMAB
     Indication: MULTIPLE SCLEROSIS
     Route: 042
     Dates: start: 20200302, end: 20210303

REACTIONS (4)
  - Headache [Recovered/Resolved]
  - Hypertension [Recovered/Resolved]
  - Spinal pain [Recovered/Resolved]
  - Depression [Not Recovered/Not Resolved]
